FAERS Safety Report 9780833 (Version 3)
Quarter: 2014Q2

REPORT INFORMATION
  Report Type: Spontaneous
  Country: DO (occurrence: DO)
  Receive Date: 20131224
  Receipt Date: 20140630
  Transmission Date: 20141212
  Serious: Yes (Death, Life-Threatening, Other)
  Sender: FDA-Public Use
  Company Number: DO-ROCHE-1318700

PATIENT
  Age: 51 Year
  Sex: Male
  Weight: 81.8 kg

DRUGS (6)
  1. MABTHERA [Suspect]
     Indication: PRODUCT USED FOR UNKNOWN INDICATION
     Route: 042
     Dates: start: 20131204, end: 20131206
  2. CARVEDILOL [Suspect]
     Indication: PRODUCT USED FOR UNKNOWN INDICATION
     Route: 048
     Dates: start: 201311
  3. ESOMEPRAZOLE [Concomitant]
     Route: 048
     Dates: start: 201305
  4. LASIX [Concomitant]
     Indication: CARDIAC FAILURE
     Route: 048
     Dates: start: 201306
  5. INSULIN 70/30 [Concomitant]
     Indication: HYPERGLYCAEMIA
     Dosage: 70/30
     Route: 058
     Dates: start: 201306
  6. ALIZAPRIDE [Concomitant]
     Indication: NAUSEA
     Route: 048
     Dates: start: 201311

REACTIONS (4)
  - Hepatic failure [Not Recovered/Not Resolved]
  - Thrombosis [Unknown]
  - Cholangiocarcinoma [Fatal]
  - Disease progression [Fatal]
